FAERS Safety Report 7966750-5 (Version None)
Quarter: 2011Q4

REPORT INFORMATION
  Report Type: 
  Country: None (occurrence: None)
  Receive Date: 20111209
  Receipt Date: 20111205
  Transmission Date: 20120403
  Serious: No
  Sender: FDA-Public Use
  Company Number: US-BIOGENIDEC-2011BI046197

PATIENT
  Age: 49 Year
  Sex: Female

DRUGS (4)
  1. TYSABRI [Suspect]
     Indication: MULTIPLE SCLEROSIS
     Route: 042
     Dates: start: 20111115
  2. TYSABRI [Suspect]
     Route: 042
     Dates: start: 20091001, end: 20110414
  3. GILENYA [Concomitant]
     Indication: PRODUCT USED FOR UNKNOWN INDICATION
     Dates: start: 20110701
  4. TYSABRI [Suspect]
     Route: 042
     Dates: start: 20080207, end: 20090312

REACTIONS (3)
  - PAIN [None]
  - MULTIPLE SCLEROSIS [None]
  - DIZZINESS [None]
